FAERS Safety Report 5015009-7 (Version None)
Quarter: 2006Q2

REPORT INFORMATION
  Report Type: 
  Country: None (occurrence: None)
  Receive Date: 20060530
  Receipt Date: 20060522
  Transmission Date: 20061013
  Serious: Yes (Death)
  Sender: FDA-Public Use
  Company Number: 2006-05-1777

PATIENT
  Age: 88 Year
  Sex: Female

DRUGS (1)
  1. IMDUR [Suspect]
     Dosage: 60 MEQ

REACTIONS (1)
  - DEATH [None]
